FAERS Safety Report 8502649-3 (Version None)
Quarter: 2012Q2

REPORT INFORMATION
  Report Type: 
  Country: None (occurrence: None)
  Receive Date: 20120629
  Receipt Date: 20120618
  Transmission Date: 20120825
  Serious: Yes (Other)
  Sender: FDA-Public Use
  Company Number: 2012SP033726

PATIENT
  Age: 41 Year
  Sex: Male

DRUGS (3)
  1. ATIVAN [Concomitant]
  2. ASMANEX TWISTHALER [Suspect]
     Indication: ASTHMA
     Dosage: 1 DF;QAM;PO
     Route: 048
     Dates: start: 20100401
  3. OMEPRAZOLE [Concomitant]

REACTIONS (6)
  - READING DISORDER [None]
  - CATARACT [None]
  - BLINDNESS UNILATERAL [None]
  - IMPAIRED DRIVING ABILITY [None]
  - VISION BLURRED [None]
  - HYPOAESTHESIA [None]
